FAERS Safety Report 6427813-9 (Version None)
Quarter: 2009Q4

REPORT INFORMATION
  Report Type: 
  Country: None (occurrence: None)
  Receive Date: 20091105
  Receipt Date: 20091028
  Transmission Date: 20100525
  Serious: Yes (Other)
  Sender: FDA-Public Use
  Company Number: US-ASTRAZENECA-2009UW13473

PATIENT
  Age: 25 Year
  Weight: 112.9 kg

DRUGS (4)
  1. SEROQUEL [Suspect]
     Indication: BIPOLAR DISORDER
     Dosage: 300-600 MG
     Route: 048
     Dates: start: 19990101
  2. PAXIL [Concomitant]
     Indication: BIPOLAR DISORDER
     Dates: start: 19940101
  3. PAXIL [Concomitant]
     Indication: DEPRESSION
     Dates: start: 19940101
  4. METFORMIN [Concomitant]
     Dates: start: 20040101

REACTIONS (6)
  - BLOOD CHOLESTEROL INCREASED [None]
  - CHOLECYSTECTOMY [None]
  - GESTATIONAL DIABETES [None]
  - HYPERLIPIDAEMIA [None]
  - TARDIVE DYSKINESIA [None]
  - TYPE 2 DIABETES MELLITUS [None]
